FAERS Safety Report 4735037-6 (Version None)
Quarter: 2005Q3

REPORT INFORMATION
  Report Type: 
  Country: None (occurrence: None)
  Receive Date: 20050804
  Receipt Date: 20050722
  Transmission Date: 20060218
  Serious: Yes (Disabling)
  Sender: FDA-Public Use
  Company Number: RO-MERCK-0507HUN00025

PATIENT
  Age: 55 Year
  Sex: Female
  Weight: 60 kg

DRUGS (1)
  1. FOSAMAX [Suspect]
     Indication: OSTEOPOROSIS
     Route: 065
     Dates: start: 20050627, end: 20050704

REACTIONS (4)
  - BONE PAIN [None]
  - CHEST DISCOMFORT [None]
  - CONSTIPATION [None]
  - THIRST [None]
